FAERS Safety Report 8279311-8 (Version None)
Quarter: 2012Q2

REPORT INFORMATION
  Report Type: 
  Country: None (occurrence: None)
  Receive Date: 20120412
  Receipt Date: 20120206
  Transmission Date: 20120825
  Serious: Yes (Other)
  Sender: FDA-Public Use
  Company Number: US-ASTRAZENECA-2012SE08025

PATIENT
  Age: 48 Year
  Sex: Female

DRUGS (2)
  1. LASIX [Concomitant]
     Indication: FLUID RETENTION
  2. NEXIUM [Suspect]
     Indication: DYSPEPSIA
     Route: 048
     Dates: start: 20050101, end: 20120101

REACTIONS (3)
  - FOOT FRACTURE [None]
  - DRUG DOSE OMISSION [None]
  - DYSPEPSIA [None]
